FAERS Safety Report 22379728 (Version 1)
Quarter: 2023Q2

REPORT INFORMATION
  Report Type: Spontaneous
  Country: US (occurrence: US)
  Receive Date: 20230529
  Receipt Date: 20230529
  Transmission Date: 20230722
  Serious: Yes (Hospitalization)
  Sender: FDA-Public Use
  Company Number: US-NOVOPROD-1069527

PATIENT
  Age: 45 Year
  Sex: Female

DRUGS (1)
  1. SEMAGLUTIDE [Suspect]
     Active Substance: SEMAGLUTIDE
     Indication: Product used for unknown indication
     Dosage: 2.5 MG INSTEAD OF 0.25 MG

REACTIONS (7)
  - Oropharyngeal discomfort [Unknown]
  - Food intolerance [Unknown]
  - Dehydration [Unknown]
  - Abdominal pain [Unknown]
  - Vomiting [Unknown]
  - Accidental overdose [Unknown]
  - Product administration error [Unknown]
